FAERS Safety Report 4360226-2 (Version None)
Quarter: 2004Q2

REPORT INFORMATION
  Report Type: 
  Country: None (occurrence: None)
  Receive Date: 20040513
  Receipt Date: 20040504
  Transmission Date: 20050107
  Serious: Yes (Other)
  Sender: FDA-Public Use
  Company Number: 2004030156

PATIENT
  Age: 60 Year
  Sex: Female

DRUGS (6)
  1. TIKOSYN [Suspect]
     Indication: ATRIAL FIBRILLATION
     Dosage: 1000 MCG (500 MCG, 2 IN 1
     Dates: start: 20040401
  2. WARFARIN SODIUM [Concomitant]
  3. ADVICOR - SLOW RELEASE (LOVASTATI, NICOTINIC ACID) [Concomitant]
  4. THOMAPYRIN N (ACETYLSALICYLIC ACID, CAFFEINE, PARACETAMOL) [Concomitant]
  5. ANTIDEPRESSANTS (ANTIDEPRESSANTS) [Concomitant]
  6. SOTALOL HCL [Concomitant]

REACTIONS (6)
  - ATRIAL FIBRILLATION [None]
  - DISEASE RECURRENCE [None]
  - DIZZINESS [None]
  - EXTRASYSTOLES [None]
  - HEART RATE INCREASED [None]
  - PALLOR [None]
